FAERS Safety Report 8376192-9 (Version None)
Quarter: 2012Q2

REPORT INFORMATION
  Report Type: 
  Country: None (occurrence: None)
  Receive Date: 20120522
  Receipt Date: 20120516
  Transmission Date: 20120825
  Serious: Yes (Hospitalization)
  Sender: FDA-Public Use
  Company Number: US-BAYER-2012-049704

PATIENT
  Age: 49 Year
  Sex: Female
  Weight: 68 kg

DRUGS (6)
  1. FLEXERIL [Concomitant]
     Dosage: UNK
     Dates: start: 20101123
  2. IBUPROFEN [Concomitant]
     Dosage: UNK
     Dates: start: 20101030
  3. LEVOTHYROXINE SODIUM [Concomitant]
     Dosage: UNK
     Dates: start: 20101123
  4. YAZ [Suspect]
  5. 5-HTP [Concomitant]
     Dosage: UNK
     Dates: start: 20101030
  6. ACETAMINOPHEN/HYDROCODONE BITARTRATE [Concomitant]
     Dosage: UNK
     Dates: start: 20101030

REACTIONS (1)
  - DEEP VEIN THROMBOSIS [None]
